FAERS Safety Report 5804907-X (Version None)
Quarter: 2008Q3

REPORT INFORMATION
  Report Type: 
  Country: None (occurrence: None)
  Receive Date: 20080709
  Receipt Date: 20080630
  Transmission Date: 20090109
  Serious: Yes (Other)
  Sender: FDA-Public Use
  Company Number: PHHY2008GB09394

PATIENT
  Sex: Female
  Weight: 75 kg

DRUGS (8)
  1. RASILEZ [Suspect]
     Indication: HYPERTENSION
     Dosage: 150 MG, UNK
     Route: 048
     Dates: start: 20071231, end: 20080519
  2. ANTIBIOTICS [Concomitant]
     Dosage: UNK
  3. ACETAMINOPHEN [Concomitant]
     Indication: OSTEOARTHRITIS
     Dosage: UNK
  4. NITRAZEPAM [Concomitant]
     Indication: INSOMNIA
     Dosage: 5 MG, QD
  5. OMEPRAZOLE [Concomitant]
     Indication: DYSPEPSIA
     Dosage: 20 MG, UNK
     Route: 048
  6. VALSARTAN [Concomitant]
     Indication: HYPERTENSION
     Dosage: 80 MG, UNK
     Route: 048
  7. FUROSEMIDE [Concomitant]
     Indication: OEDEMA PERIPHERAL
     Dosage: 20 MG, UNK
     Route: 048
  8. QUININE BISULPHATE [Concomitant]
     Indication: MUSCLE SPASMS
     Dosage: 300 MG, PRN

REACTIONS (4)
  - BLOOD PRESSURE DECREASED [None]
  - DIARRHOEA [None]
  - DYSPNOEA [None]
  - LOWER RESPIRATORY TRACT INFECTION [None]
